FAERS Safety Report 9817555 (Version 2)
Quarter: 2014Q1

REPORT INFORMATION
  Report Type: Spontaneous
  Country: US (occurrence: US)
  Receive Date: 20140115
  Receipt Date: 20140131
  Transmission Date: 20141002
  Serious: No
  Sender: FDA-Public Use
  Company Number: US-ROCHE-1332391

PATIENT
  Age: 7 Year
  Sex: Female
  Weight: 19.98 kg

DRUGS (1)
  1. TAMIFLU [Suspect]
     Indication: INFLUENZA
     Dosage: FOR 5 DAYS
     Route: 048
     Dates: start: 20140110, end: 20140116

REACTIONS (5)
  - Vomiting [Recovered/Resolved]
  - Chills [Unknown]
  - Fatigue [Unknown]
  - Dysgeusia [Unknown]
  - Malaise [Unknown]
